FAERS Safety Report 5055746-1 (Version None)
Quarter: 2006Q3

REPORT INFORMATION
  Report Type: 
  Country: None (occurrence: None)
  Receive Date: 20060714
  Receipt Date: 20060705
  Transmission Date: 20061208
  Serious: Yes (Other)
  Sender: FDA-Public Use
  Company Number: SPV1-2006-00170

PATIENT
  Sex: Female

DRUGS (5)
  1. ADDERALL 10 [Suspect]
  2. OPIATE [Concomitant]
  3. METHAMPHETAMINE       (METAMPETAMINE HYDROCHLORIDE) [Concomitant]
  4. ATIVAN [Concomitant]
  5. VALIUM [Concomitant]

REACTIONS (2)
  - DRUG DEPENDENCE [None]
  - EUPHORIC MOOD [None]
